FAERS Safety Report 9904776 (Version 1)
Quarter: 2014Q1

REPORT INFORMATION
  Report Type: Spontaneous
  Country: BR (occurrence: BR)
  Receive Date: 20140218
  Receipt Date: 20140218
  Transmission Date: 20141002
  Serious: Yes (Hospitalization)
  Sender: FDA-Public Use
  Company Number: BR-ASTRAZENECA-2014SE10125

PATIENT
  Age: 543 Month
  Sex: Male
  Weight: 78.5 kg

DRUGS (7)
  1. ATENOLOL [Suspect]
     Indication: HYPERTENSION
     Route: 048
     Dates: start: 1999
  2. OMEPRAZOLE [Suspect]
     Indication: GASTROOESOPHAGEAL REFLUX DISEASE
     Route: 048
     Dates: start: 201307
  3. ROSUCOR [Suspect]
     Indication: BLOOD CHOLESTEROL ABNORMAL
     Route: 048
     Dates: start: 201307
  4. BRILINTA [Suspect]
     Indication: POST PROCEDURAL MYOCARDIAL INFARCTION
     Route: 048
     Dates: start: 201307
  5. SUSTRATE [Concomitant]
     Indication: CARDIAC DISORDER
     Route: 048
     Dates: start: 201307
  6. ASPIRINA [Concomitant]
     Dosage: PREVENT
     Route: 048
     Dates: start: 201307
  7. RIVOTRIL [Concomitant]
     Indication: SEDATIVE THERAPY
     Route: 048
     Dates: start: 201307

REACTIONS (5)
  - Myocardial infarction [Recovered/Resolved]
  - Weight decreased [Not Recovered/Not Resolved]
  - Blood cholesterol abnormal [Unknown]
  - Cardiac disorder [Unknown]
  - Gastrooesophageal reflux disease [Unknown]
